FAERS Safety Report 7381911-4 (Version None)
Quarter: 2011Q1

REPORT INFORMATION
  Report Type: 
  Country: None (occurrence: None)
  Receive Date: 20110329
  Receipt Date: 20110317
  Transmission Date: 20110831
  Serious: Yes (Hospitalization)
  Sender: FDA-Public Use
  Company Number: JP-ELI_LILLY_AND_COMPANY-JP201102002179

PATIENT
  Sex: Female

DRUGS (15)
  1. MELOXICAM [Concomitant]
     Dosage: 10 MG, QD
     Route: 048
  2. CELECOX [Concomitant]
     Dosage: 100 MG, QD
     Route: 048
  3. LANSOPRAZOLE [Concomitant]
     Dosage: 15 MG, BID
     Route: 048
  4. FLUTICASONE PROPIONATE W/SALMETEROL XINAFOATE [Concomitant]
     Dosage: UNK, BID
     Route: 055
  5. FORTEO [Suspect]
     Indication: OSTEOPOROSIS
     Dosage: 10 UG, QD
     Route: 058
     Dates: start: 20110131, end: 20110131
  6. METHISTA [Concomitant]
     Dosage: 500 MG, BID
     Route: 048
  7. TERNELIN [Concomitant]
     Dosage: 4 MG, QD
     Route: 048
  8. EPEL [Concomitant]
     Dosage: 50 MG, QD
     Route: 048
  9. FORTEO [Suspect]
     Dosage: 20 UG, QD
     Route: 058
     Dates: start: 20110207, end: 20110207
  10. FLOMAX [Concomitant]
     Dosage: 300 MG, QD
     Route: 048
  11. NU LOTAN [Concomitant]
     Dosage: 50 MG, QD
     Route: 048
  12. FORTEO [Suspect]
     Dosage: 20 UG, QD
     Route: 058
     Dates: start: 20110203, end: 20110203
  13. BAZAROIN [Concomitant]
     Dosage: 10 MG, BID
     Route: 048
  14. AMLODIPINE BESYLATE [Concomitant]
     Dosage: 2.5 MG, QD
     Route: 048
  15. LIMARMONE [Concomitant]
     Dosage: 5 UG, BID
     Route: 048

REACTIONS (5)
  - MUSCLE SPASMS [None]
  - BLOOD PRESSURE DECREASED [None]
  - FEELING ABNORMAL [None]
  - INAPPROPRIATE SCHEDULE OF DRUG ADMINISTRATION [None]
  - UNDERDOSE [None]
